FAERS Safety Report 25928373 (Version 1)
Quarter: 2025Q4

REPORT INFORMATION
  Report Type: Report from Study
  Country: US (occurrence: US)
  Receive Date: 20251016
  Receipt Date: 20251016
  Transmission Date: 20260118
  Serious: Yes (Other)
  Sender: ROCHE
  Company Number: US-ROCHE-10000407339

PATIENT

DRUGS (4)
  1. ATEZOLIZUMAB [Suspect]
     Active Substance: ATEZOLIZUMAB
     Indication: Hepatocellular carcinoma
     Route: 065
  2. BEVACIZUMAB [Suspect]
     Active Substance: BEVACIZUMAB
     Indication: Hepatocellular carcinoma
     Route: 042
  3. TREMELIMUMAB [Suspect]
     Active Substance: TREMELIMUMAB
     Indication: Hepatocellular carcinoma
     Route: 042
  4. DURVALUMAB [Suspect]
     Active Substance: DURVALUMAB
     Indication: Hepatocellular carcinoma
     Route: 042

REACTIONS (27)
  - Diarrhoea [Unknown]
  - Constipation [Unknown]
  - Oedema [Unknown]
  - Mucosal inflammation [Unknown]
  - Intestinal perforation [Unknown]
  - Muscular weakness [Unknown]
  - Fatigue [Unknown]
  - Aspartate aminotransferase increased [Unknown]
  - Alanine aminotransferase increased [Unknown]
  - Platelet count decreased [Unknown]
  - Decreased appetite [Unknown]
  - Blood bilirubin increased [Unknown]
  - Rash [Unknown]
  - Hypertension [Unknown]
  - Nausea [Unknown]
  - Asthenia [Unknown]
  - Vomiting [Unknown]
  - Abdominal pain [Unknown]
  - Pruritus [Unknown]
  - Weight decreased [Unknown]
  - Proteinuria [Unknown]
  - Pyrexia [Unknown]
  - Cough [Unknown]
  - Epistaxis [Unknown]
  - Insomnia [Unknown]
  - Anaemia [Unknown]
  - Arthralgia [Unknown]
